FAERS Safety Report 5750573-1 (Version None)
Quarter: 2008Q2

REPORT INFORMATION
  Report Type: 
  Country: None (occurrence: None)
  Receive Date: 20080528
  Receipt Date: 20080523
  Transmission Date: 20081010
  Serious: Yes (Other)
  Sender: FDA-Public Use
  Company Number: RO-BRISTOL-MYERS SQUIBB COMPANY-14204416

PATIENT
  Age: 19 Year
  Sex: Female

DRUGS (8)
  1. DIDANOSINE [Suspect]
     Indication: ANTIRETROVIRAL THERAPY
     Dates: start: 20060901
  2. EFAVIRENZ [Suspect]
     Indication: ANTIRETROVIRAL THERAPY
     Dates: start: 20060901
  3. LAMIVUDINE [Suspect]
     Indication: ANTIRETROVIRAL THERAPY
     Dates: start: 20060901
  4. ISONIAZID [Concomitant]
     Indication: TUBERCULOSIS
     Dates: start: 20060201
  5. ETHAMBUTOL HYDROCHLORIDE [Concomitant]
     Indication: TUBERCULOSIS
     Dates: start: 20060201
  6. PYRAZINAMIDE [Concomitant]
     Indication: TUBERCULOSIS
     Dates: start: 20060201
  7. STREPTOMYCIN [Concomitant]
     Indication: TUBERCULOSIS
     Dates: start: 20060201
  8. B6 [Concomitant]
     Indication: TUBERCULOSIS
     Dates: start: 20060201

REACTIONS (3)
  - ELECTROCARDIOGRAM Q WAVE ABNORMAL [None]
  - ELECTROCARDIOGRAM ST SEGMENT ABNORMAL [None]
  - SINUS TACHYCARDIA [None]
